FAERS Safety Report 25074733 (Version 13)
Quarter: 2025Q4

REPORT INFORMATION
  Report Type: Spontaneous
  Country: JP (occurrence: JP)
  Receive Date: 20250313
  Receipt Date: 20251223
  Transmission Date: 20260118
  Serious: Yes (Hospitalization, Other)
  Sender: MERCK SHARP & DOHME LLC
  Company Number: JP-009507513-2262944

PATIENT
  Age: 7 Decade
  Sex: Male

DRUGS (5)
  1. KEYTRUDA [Suspect]
     Active Substance: PEMBROLIZUMAB
     Indication: Renal cell carcinoma recurrent
     Dosage: LAST ADMIN DATE: IN 2025
     Route: 041
     Dates: start: 20250227
  2. LENVIMA [Suspect]
     Active Substance: LENVATINIB
     Indication: Renal cell carcinoma recurrent
     Dosage: STRENGTH: 4 MG (10MG)
     Route: 048
     Dates: start: 20250227, end: 20250309
  3. LENVIMA [Suspect]
     Active Substance: LENVATINIB
     Indication: Renal cell carcinoma recurrent
     Dosage: STRENGTH: 4 MG?LAST ADMIN DATE: IN 2025
     Route: 048
     Dates: start: 20250410
  4. LENVIMA [Suspect]
     Active Substance: LENVATINIB
     Indication: Renal cell carcinoma recurrent
     Dosage: STRENGTH: 4 MG
     Route: 048
     Dates: start: 20250310, end: 20250312
  5. LENVIMA [Suspect]
     Active Substance: LENVATINIB
     Indication: Renal cell carcinoma recurrent
     Dosage: STRENGTH: 4 MG (ALSO REPORTED 10 MG)
     Route: 048
     Dates: start: 20250313, end: 20250327

REACTIONS (5)
  - Hypertension [Not Recovered/Not Resolved]
  - Immune-mediated enterocolitis [Recovering/Resolving]
  - Hepatic function abnormal [Recovered/Resolved]
  - Platelet count decreased [Recovered/Resolved]
  - Palmar-plantar erythrodysaesthesia syndrome [Recovered/Resolved]

NARRATIVE: CASE EVENT DATE: 20250101
